FAERS Safety Report 5503061-1 (Version None)
Quarter: 2007Q4

REPORT INFORMATION
  Report Type: 
  Country: None (occurrence: None)
  Receive Date: 20071031
  Receipt Date: 20071016
  Transmission Date: 20080405
  Serious: Yes (Death, Other)
  Sender: FDA-Public Use
  Company Number: GR-BRISTOL-MYERS SQUIBB COMPANY-13841515

PATIENT
  Age: 7 Year
  Sex: Female
  Weight: 25 kg

DRUGS (9)
  1. CYCLOPHOSPHAMIDE [Suspect]
     Indication: DIFFUSE VASCULITIS
     Route: 042
     Dates: start: 20070427, end: 20070427
  2. METHOTREXATE [Suspect]
     Indication: DIFFUSE VASCULITIS
     Dates: start: 20010801
  3. KINERET [Suspect]
     Indication: DIFFUSE VASCULITIS
     Route: 058
     Dates: start: 20060322, end: 20070420
  4. PREDNISOLONE [Suspect]
     Indication: DIFFUSE VASCULITIS
     Route: 048
     Dates: start: 20010620, end: 20020515
  5. METHYLPREDNISOLONE [Suspect]
     Indication: DIFFUSE VASCULITIS
     Route: 042
     Dates: start: 20070503, end: 20070505
  6. CYCLOSPORINE [Suspect]
     Indication: DIFFUSE VASCULITIS
     Dates: start: 20070502, end: 20070504
  7. ETANERCEPT [Suspect]
     Indication: DIFFUSE VASCULITIS
     Dates: start: 20010801
  8. AZATHIOPRINE [Suspect]
     Indication: DIFFUSE VASCULITIS
     Dates: start: 20010801
  9. CORTICOSTEROID [Concomitant]
     Indication: DIFFUSE VASCULITIS
     Dates: start: 20010801

REACTIONS (2)
  - ERYTHEMA INFECTIOSUM [None]
  - HISTIOCYTOSIS HAEMATOPHAGIC [None]
